FAERS Safety Report 19447374 (Version 1)
Quarter: 2021Q2

REPORT INFORMATION
  Report Type: Other
  Country: TN (occurrence: TN)
  Receive Date: 20210622
  Receipt Date: 20210622
  Transmission Date: 20210717
  Serious: Yes (Death)
  Sender: FDA-Public Use
  Company Number: TN-ROCHE-2855032

PATIENT

DRUGS (2)
  1. RITUXIMAB. [Suspect]
     Active Substance: RITUXIMAB
     Indication: AUTOIMMUNE HAEMOLYTIC ANAEMIA
     Route: 065
  2. CHLORAMINOPHENE [Concomitant]
     Active Substance: CHLORAMBUCIL

REACTIONS (2)
  - Infection [Fatal]
  - Off label use [Unknown]
